FAERS Safety Report 6378777-8 (Version None)
Quarter: 2009Q3

REPORT INFORMATION
  Report Type: 
  Country: None (occurrence: None)
  Receive Date: 20090928
  Receipt Date: 20090918
  Transmission Date: 20100115
  Serious: Yes (Hospitalization, Other)
  Sender: FDA-Public Use
  Company Number: US-PFIZER INC-2005011963

PATIENT
  Sex: Male
  Weight: 79.38 kg

DRUGS (2)
  1. CELEBREX [Suspect]
     Indication: ARTHRALGIA
     Dosage: 200 MG, 1X/DAY
     Route: 048
     Dates: end: 20041101
  2. CELEBREX [Suspect]
     Dosage: UNK
     Dates: start: 20081201

REACTIONS (6)
  - ARTHRALGIA [None]
  - CARDIAC DISORDER [None]
  - CORONARY ARTERY OCCLUSION [None]
  - HAEMATOCHEZIA [None]
  - HIP ARTHROPLASTY [None]
  - MYOCARDIAL INFARCTION [None]
